FAERS Safety Report 13142339 (Version 1)
Quarter: 2017Q1

REPORT INFORMATION
  Report Type: Spontaneous
  Country: US (occurrence: US)
  Receive Date: 20170124
  Receipt Date: 20170124
  Transmission Date: 20170428
  Serious: Yes (Hospitalization, Other)
  Sender: FDA-Public Use
  Company Number: US-ELI_LILLY_AND_COMPANY-US201701007225

PATIENT
  Age: 58 Year
  Sex: Female

DRUGS (5)
  1. OMEPRAZOLE. [Concomitant]
     Active Substance: OMEPRAZOLE
     Dosage: UNK, UNKNOWN
     Route: 065
  2. HUMULIN N [Suspect]
     Active Substance: INSULIN HUMAN
     Dosage: 30 U, QD
     Route: 065
  3. XANAX [Concomitant]
     Active Substance: ALPRAZOLAM
     Dosage: UNK, UNKNOWN
     Route: 065
  4. HUMULIN N [Suspect]
     Active Substance: INSULIN HUMAN
     Dosage: 30 U, SLIDING SCALE
     Route: 065
  5. HUMULIN N [Suspect]
     Active Substance: INSULIN HUMAN
     Indication: TYPE 2 DIABETES MELLITUS
     Dosage: 30 U, QD
     Route: 065
     Dates: start: 201511

REACTIONS (10)
  - Blood glucose increased [Unknown]
  - Cholelithiasis [Recovered/Resolved]
  - Liver injury [Recovered/Resolved]
  - Weight decreased [Unknown]
  - Hyperhidrosis [Unknown]
  - Renal disorder [Unknown]
  - Infection [Recovered/Resolved]
  - Hot flush [Unknown]
  - Asthenia [Unknown]
  - Blood glucose decreased [Recovered/Resolved]

NARRATIVE: CASE EVENT DATE: 201606
